FAERS Safety Report 9928351 (Version 2)
Quarter: 2014Q2

REPORT INFORMATION
  Report Type: Report from Study
  Country: US (occurrence: US)
  Receive Date: 20140227
  Receipt Date: 20140506
  Transmission Date: 20141212
  Serious: Yes (Other)
  Sender: FDA-Public Use
  Company Number: US-JNJFOC-20140216060

PATIENT
  Age: 49 Year
  Sex: Female
  Weight: 77.11 kg

DRUGS (5)
  1. REMICADE [Suspect]
     Indication: CROHN^S DISEASE
     Route: 042
     Dates: start: 201109
  2. REMICADE [Suspect]
     Indication: COLITIS ULCERATIVE
     Route: 042
     Dates: start: 201109
  3. PROTONIX [Concomitant]
     Indication: GASTROOESOPHAGEAL REFLUX DISEASE
     Route: 048
     Dates: start: 201109
  4. PROGESTERONE [Concomitant]
     Indication: HOT FLUSH
     Route: 065
     Dates: start: 201312
  5. MINIVELLE [Concomitant]
     Indication: HOT FLUSH
     Route: 065

REACTIONS (1)
  - Herpes zoster [Recovered/Resolved]
